FAERS Safety Report 23638262 (Version 7)
Quarter: 2025Q4

REPORT INFORMATION
  Report Type: Other
  Country: US (occurrence: US)
  Receive Date: 20240315
  Receipt Date: 20251019
  Transmission Date: 20260118
  Serious: No
  Sender: TRAVERE THERAPEUTICS
  Company Number: US-TRAVERE-2024TVT00247

PATIENT
  Age: 52 Year
  Sex: Male

DRUGS (15)
  1. FILSPARI [Suspect]
     Active Substance: SPARSENTAN
     Indication: Chronic kidney disease
     Dosage: LOT NUMBER: 1979025, EXPIRY DATE: 31-AUG-2026
     Route: 048
     Dates: start: 20240207
  2. FILSPARI [Suspect]
     Active Substance: SPARSENTAN
     Indication: Proteinuria
     Dosage: LOT NUMBER: 1979025, EXPIRY DATE: 31-AUG-2026
     Route: 048
     Dates: start: 20240813
  3. FILSPARI [Suspect]
     Active Substance: SPARSENTAN
     Indication: IgA nephropathy
  4. FILSPARI [Suspect]
     Active Substance: SPARSENTAN
     Indication: Glomerular vascular disorder
  5. TARPEYO [Suspect]
     Active Substance: BUDESONIDE
     Indication: Product used for unknown indication
  6. TYLENOL [Concomitant]
     Active Substance: ACETAMINOPHEN
  7. MUCINEX DM [Concomitant]
     Active Substance: DEXTROMETHORPHAN HYDROBROMIDE\GUAIFENESIN
  8. BUPROPION HYDROCHLORIDE [Concomitant]
     Active Substance: BUPROPION HYDROCHLORIDE
  9. ALBUTEROL SULFATE [Concomitant]
     Active Substance: ALBUTEROL SULFATE
  10. ALLOPURINOL [Concomitant]
     Active Substance: ALLOPURINOL
  11. ATORVASTATIN CALCIUM [Concomitant]
     Active Substance: ATORVASTATIN CALCIUM
  12. FUROSEMIDE [Concomitant]
     Active Substance: FUROSEMIDE
  13. LABETALOL HYDROCHLORIDE [Concomitant]
     Active Substance: LABETALOL HYDROCHLORIDE
  14. SYMBICORT [Concomitant]
     Active Substance: BUDESONIDE\FORMOTEROL FUMARATE DIHYDRATE
  15. TAMSULOSIN HYDROCHLORIDE [Concomitant]
     Active Substance: TAMSULOSIN HYDROCHLORIDE

REACTIONS (21)
  - Gastrointestinal disorder [Unknown]
  - Diarrhoea [Unknown]
  - Muscle spasms [Unknown]
  - Myalgia [Unknown]
  - Hangover [Unknown]
  - Nausea [None]
  - Vomiting [None]
  - Back pain [None]
  - Peripheral swelling [Unknown]
  - Face oedema [Unknown]
  - Clostridium difficile infection [Unknown]
  - Glomerular filtration rate decreased [None]
  - Gastrooesophageal reflux disease [None]
  - Dyspnoea [Unknown]
  - Oedema [Unknown]
  - Fatigue [None]
  - Retching [None]
  - Insomnia [Unknown]
  - Pain [Unknown]
  - Parosmia [Unknown]
  - Nasal congestion [Unknown]

NARRATIVE: CASE EVENT DATE: 20240207
